FAERS Safety Report 6270650-9 (Version None)
Quarter: 2009Q3

REPORT INFORMATION
  Report Type: 
  Country: None (occurrence: None)
  Receive Date: 20090716
  Receipt Date: 20090713
  Transmission Date: 20100115
  Serious: Yes (Death)
  Sender: FDA-Public Use
  Company Number: AU-ASTRAZENECA-2009SE04520

PATIENT
  Age: 8127 Day
  Sex: Male

DRUGS (2)
  1. SEROQUEL [Suspect]
     Indication: DEPRESSION
     Route: 048
  2. ZYPREXA [Suspect]
     Indication: DEPRESSION
     Route: 048
     Dates: end: 20061115

REACTIONS (5)
  - AGGRESSION [None]
  - AKATHISIA [None]
  - COMPLETED SUICIDE [None]
  - IRRITABILITY [None]
  - NERVOUS SYSTEM DISORDER [None]
